FAERS Safety Report 4903374-8 (Version None)
Quarter: 2006Q1

REPORT INFORMATION
  Report Type: 
  Country: None (occurrence: None)
  Receive Date: 20060206
  Receipt Date: 20060206
  Transmission Date: 20060701
  Serious: Yes (Congenital Anomaly)
  Sender: FDA-Public Use
  Company Number: None

PATIENT
  Age: 49 Year
  Sex: Female
  Weight: 81.1939 kg

DRUGS (3)
  1. KETEK [Suspect]
     Indication: ACUTE SINUSITIS
     Dosage: 400MG DAILY PO
     Route: 048
     Dates: start: 20050203
  2. KETEK [Suspect]
     Indication: ACUTE SINUSITIS
     Dosage: 400MG DAILY PO
     Route: 048
     Dates: start: 20040818
  3. KETEK [Suspect]
     Indication: ACUTE SINUSITIS
     Dosage: 400MG DAILY PO
     Route: 048
     Dates: start: 20041019

REACTIONS (2)
  - HEPATIC STEATOSIS [None]
  - TRANSAMINASES INCREASED [None]
